FAERS Safety Report 19215011 (Version 1)
Quarter: 2021Q2

REPORT INFORMATION
  Report Type: Other
  Country: AU (occurrence: AU)
  Receive Date: 20210505
  Receipt Date: 20210505
  Transmission Date: 20210717
  Serious: Yes (Hospitalization)
  Sender: FDA-Public Use
  Company Number: AU-ORCHID HEALTHCARE-2110213

PATIENT
  Age: 19 Year
  Sex: Female

DRUGS (1)
  1. DIVALPROEX SODIUM. [Suspect]
     Active Substance: DIVALPROEX SODIUM
     Route: 048

REACTIONS (5)
  - Respiratory depression [Recovered/Resolved]
  - Hyperammonaemia [Recovered/Resolved]
  - Overdose [Recovered/Resolved]
  - Acidosis [Recovered/Resolved]
  - Drug level above therapeutic [Recovered/Resolved]
